FAERS Safety Report 4281720-9 (Version None)
Quarter: 2004Q1

REPORT INFORMATION
  Report Type: 
  Country: None (occurrence: None)
  Receive Date: 20040112
  Receipt Date: 20031013
  Transmission Date: 20041129
  Serious: No
  Sender: FDA-Public Use
  Company Number: PHEH2003US08392

PATIENT
  Age: 4 Year
  Sex: Male
  Weight: 18.1 kg

DRUGS (1)
  1. ELIDEL [Suspect]
     Indication: ECZEMA NUMMULAR
     Dosage: BID, PRN, TOPICAL
     Route: 061
     Dates: start: 20021201, end: 20030901

REACTIONS (6)
  - BLISTER [None]
  - IMPETIGO [None]
  - PRURITUS [None]
  - RASH [None]
  - SKIN BURNING SENSATION [None]
  - SKIN LESION [None]
